FAERS Safety Report 13359382 (Version 1)
Quarter: 2017Q1

REPORT INFORMATION
  Report Type: Other
  Country: JP (occurrence: JP)
  Receive Date: 20170322
  Receipt Date: 20170322
  Transmission Date: 20170429
  Serious: Yes (Other)
  Sender: FDA-Public Use
  Company Number: JP-HIKMA PHARMACEUTICALS CO. LTD-2017JP002522

PATIENT

DRUGS (7)
  1. INFLIXIMAB BS FOR I.V. INFUSION100 MG [NK] [Suspect]
     Active Substance: INFLIXIMAB
     Dosage: 300 MG/BODY/DAY, UNK
     Route: 042
     Dates: start: 20170203, end: 20170203
  2. AZANIN [Concomitant]
     Active Substance: AZATHIOPRINE
     Indication: CROHN^S DISEASE
     Dosage: 75 MG, DAILY
     Dates: start: 20160829
  3. INFLIXIMAB BS FOR I.V. INFUSION100 MG [NK] [Suspect]
     Active Substance: INFLIXIMAB
     Indication: CROHN^S DISEASE
     Dosage: 300 MG/BODY/DAY, UNK
     Route: 042
     Dates: start: 20161214, end: 20161214
  4. BIO-THREE [Concomitant]
     Active Substance: HERBALS
     Indication: CROHN^S DISEASE
     Dosage: 6 DF, UNK
     Dates: start: 20160829
  5. SODIUM FERROUS CITRATE [Concomitant]
     Active Substance: SODIUM FERROUS CITRATE
     Dosage: 2 DF, DAILY
     Dates: start: 20160829
  6. PENTASA [Concomitant]
     Active Substance: MESALAMINE
     Indication: CROHN^S DISEASE
     Dosage: 3000 MG, DAILY
     Dates: start: 20160829
  7. GASTEEL                            /00159501/ [Concomitant]
     Dosage: 120 MG, DAILY
     Dates: start: 20160829

REACTIONS (4)
  - Infusion related reaction [Recovered/Resolved]
  - Eczema [Recovering/Resolving]
  - Contraindicated product administered [Unknown]
  - Pustular psoriasis [Recovering/Resolving]

NARRATIVE: CASE EVENT DATE: 20161224
